FAERS Safety Report 6287954-6 (Version None)
Quarter: 2009Q3

REPORT INFORMATION
  Report Type: 
  Country: None (occurrence: None)
  Receive Date: 20090729
  Receipt Date: 20090728
  Transmission Date: 20100115
  Serious: Yes (Hospitalization)
  Sender: FDA-Public Use
  Company Number: IT-BRISTOL-MYERS SQUIBB COMPANY-14719439

PATIENT
  Age: 81 Year
  Sex: Female

DRUGS (5)
  1. TRITTICO [Suspect]
     Indication: DEPRESSION
     Dosage: STR: 50 MG FORM: TABS
     Route: 048
     Dates: start: 20081101, end: 20090528
  2. EPROSARTAN MESILATE [Concomitant]
     Dates: start: 20081101
  3. ZYLORIC [Concomitant]
     Dates: start: 20081101
  4. SIMVASTATIN [Concomitant]
     Dates: start: 20081101
  5. ALIFLUS DISKUS [Concomitant]
     Dates: start: 20081101

REACTIONS (1)
  - HYPONATRAEMIA [None]
